FAERS Safety Report 23293738 (Version 1)
Quarter: 2023Q4

REPORT INFORMATION
  Report Type: Report from Study
  Country: CA (occurrence: None)
  Receive Date: 20231213
  Receipt Date: 20231213
  Transmission Date: 20240109
  Serious: Yes (Death, Other)
  Sender: FDA-Public Use
  Company Number: 2023A281051

PATIENT
  Age: 29191 Day
  Sex: Female

DRUGS (12)
  1. FASENRA [Suspect]
     Active Substance: BENRALIZUMAB
     Indication: Asthma
     Route: 058
     Dates: start: 20200303
  2. ALBUTEROL [Concomitant]
     Active Substance: ALBUTEROL
     Dosage: AS NEEDED
  3. TRIALEGY ELIPTA [Concomitant]
     Dosage: 100/62 5/25 MCG
  4. RABEPRAZOLE [Concomitant]
     Active Substance: RABEPRAZOLE
  5. LORAZEPAM [Concomitant]
     Active Substance: LORAZEPAM
  6. FUROSEMIDE [Concomitant]
     Active Substance: FUROSEMIDE
  7. CITALOPRAM [Concomitant]
     Active Substance: CITALOPRAM HYDROBROMIDE
  8. METOPROLOL TARTRATE [Concomitant]
     Active Substance: METOPROLOL TARTRATE
  9. CLOPIDOGREL [Concomitant]
     Active Substance: CLOPIDOGREL BISULFATE
  10. LAVOTHROXINE [Concomitant]
  11. ROSUVASTATIN [Concomitant]
     Active Substance: ROSUVASTATIN
  12. TIAZAC [Concomitant]
     Active Substance: DILTIAZEM HYDROCHLORIDE

REACTIONS (1)
  - Death [Fatal]

NARRATIVE: CASE EVENT DATE: 20231130
